FAERS Safety Report 9248486 (Version 1)
Quarter: 2013Q1

REPORT INFORMATION
  Report Type: Spontaneous
  Country: US (occurrence: None)
  Receive Date: 20121113
  Receipt Date: 20121113
  Transmission Date: 20140127
  Serious: Yes (Other)
  Sender: FDA-Public Use
  Company Number: PHEH2012US010203

PATIENT
  Age: 60 Year
  Sex: Female

DRUGS (1)
  1. TRILEPTAL [Suspect]
     Route: 048

REACTIONS (4)
  - Swelling face [None]
  - Lip swelling [None]
  - Swollen tongue [None]
  - Blood potassium decreased [None]
